FAERS Safety Report 4576996-4 (Version None)
Quarter: 2005Q1

REPORT INFORMATION
  Report Type: 
  Country: None (occurrence: None)
  Receive Date: 20050208
  Receipt Date: 20050129
  Transmission Date: 20050727
  Serious: Yes (Hospitalization)
  Sender: FDA-Public Use
  Company Number: 2004UW25180

PATIENT
  Age: 49 Year
  Sex: Male
  Weight: 100.2449 kg

DRUGS (4)
  1. SEROQUEL [Suspect]
     Indication: SCHIZOPHRENIA
     Dosage: 400 MG QD PO
     Route: 048
     Dates: start: 20041113, end: 20041206
  2. TYLENOL (CAPLET) [Concomitant]
  3. AMBIEN [Concomitant]
  4. ATIVAN [Concomitant]

REACTIONS (5)
  - AFFECT LABILITY [None]
  - AGITATION [None]
  - CONDITION AGGRAVATED [None]
  - PARANOIA [None]
  - PSYCHOTIC DISORDER [None]
